FAERS Safety Report 10763529 (Version 1)
Quarter: 2015Q1

REPORT INFORMATION
  Report Type: Spontaneous
  Country: US (occurrence: None)
  Receive Date: 20150129
  Receipt Date: 20150129
  Transmission Date: 20150721
  Serious: Yes (Other)
  Sender: FDA-Public Use
  Company Number: 2014014099

PATIENT
  Age: 25 Year
  Sex: Female

DRUGS (1)
  1. KEPPRA [Suspect]
     Active Substance: LEVETIRACETAM
     Indication: PRODUCT USED FOR UNKNOWN INDICATION

REACTIONS (16)
  - Heart rate decreased [None]
  - Weight decreased [None]
  - Migraine [None]
  - Drug ineffective [None]
  - Partial seizures [None]
  - Blood pressure decreased [None]
  - Abnormal behaviour [None]
  - Breast feeding [None]
  - Chest pain [None]
  - Stress [None]
  - Weight increased [None]
  - Somnambulism [None]
  - Eating disorder [None]
  - Seizure [None]
  - Syncope [None]
  - Heart rate irregular [None]
